FAERS Safety Report 8269549-8 (Version None)
Quarter: 2012Q2

REPORT INFORMATION
  Report Type: 
  Country: None (occurrence: None)
  Receive Date: 20120409
  Receipt Date: 20120321
  Transmission Date: 20120825
  Serious: No
  Sender: FDA-Public Use
  Company Number: US-BAXTER-2012BAX000688

PATIENT
  Sex: Female
  Weight: 88.984 kg

DRUGS (7)
  1. EPINEPHRINE [Concomitant]
     Route: 042
     Dates: start: 20120217, end: 20120217
  2. PENICILLIN G POTASSIUM [Suspect]
     Route: 042
     Dates: start: 20120217
  3. 0.9% SODIUM CHLORIDE INJECTION [Suspect]
     Route: 042
     Dates: start: 20120217, end: 20120217
  4. PITOCIN [Concomitant]
     Route: 042
     Dates: start: 20120217, end: 20120217
  5. PENICILLIN G POTASSIUM [Suspect]
     Route: 042
     Dates: start: 20120217, end: 20120217
  6. EPINEPHRINE [Concomitant]
     Route: 030
     Dates: start: 20120217, end: 20120217
  7. EPINEPHRINE [Concomitant]
     Route: 030
     Dates: start: 20120217, end: 20120217

REACTIONS (2)
  - INFUSION SITE PAIN [None]
  - MATERNAL EXPOSURE DURING PREGNANCY [None]
